FAERS Safety Report 17235768 (Version 1)
Quarter: 2020Q1

REPORT INFORMATION
  Report Type: Spontaneous
  Country: US (occurrence: US)
  Receive Date: 20200103
  Receipt Date: 20200103
  Transmission Date: 20200409
  Serious: Yes (Death)
  Sender: FDA-Public Use
  Company Number: None

PATIENT
  Age: 46 Year
  Sex: Male
  Weight: 139.5 kg

DRUGS (3)
  1. OZEMPIC [Concomitant]
     Active Substance: SEMAGLUTIDE
  2. OSELTAMIVIR PHOSPHATE CAPSULES USP [Suspect]
     Active Substance: OSELTAMIVIR PHOSPHATE
     Indication: INFLUENZA
     Dosage: ?          QUANTITY:1 CAPSULE(S);?
     Route: 048
     Dates: start: 20191103, end: 20191103
  3. METFORMIN [Concomitant]
     Active Substance: METFORMIN HYDROCHLORIDE

REACTIONS (1)
  - Influenza [None]

NARRATIVE: CASE EVENT DATE: 20191103
